FAERS Safety Report 6583156-4 (Version None)
Quarter: 2010Q1

REPORT INFORMATION
  Report Type: 
  Country: None (occurrence: None)
  Receive Date: 20100216
  Receipt Date: 20100209
  Transmission Date: 20100710
  Serious: Yes (Hospitalization)
  Sender: FDA-Public Use
  Company Number: FR-ROCHE-684579

PATIENT
  Sex: Female

DRUGS (6)
  1. GRANISETRON HYDROCHLORIDE [Suspect]
     Indication: VOMITING
     Route: 042
     Dates: start: 20090826, end: 20090827
  2. BEVACIZUMAB [Suspect]
     Route: 042
     Dates: start: 20090827, end: 20090827
  3. CAMPTOSAR [Suspect]
     Route: 042
     Dates: start: 20090826, end: 20090826
  4. LEDERFOLINE [Suspect]
     Route: 042
     Dates: start: 20090826, end: 20090827
  5. FLUOROURACIL [Suspect]
     Route: 042
     Dates: start: 20090826, end: 20090828
  6. ATROPINE [Suspect]
     Indication: DRUG USE FOR UNKNOWN INDICATION
     Route: 042
     Dates: start: 20090826, end: 20090826

REACTIONS (1)
  - GASTROINTESTINAL PERFORATION [None]
